FAERS Safety Report 21420797 (Version 2)
Quarter: 2022Q4

REPORT INFORMATION
  Report Type: Spontaneous
  Country: SK (occurrence: SK)
  Receive Date: 20221007
  Receipt Date: 20221017
  Transmission Date: 20230113
  Serious: Yes (Hospitalization)
  Sender: FDA-Public Use
  Company Number: SK-SA-2022SA408524

PATIENT
  Age: 40 Year
  Sex: Male

DRUGS (3)
  1. CLOPIDOGREL BISULFATE [Suspect]
     Active Substance: CLOPIDOGREL BISULFATE
     Indication: Venous recanalisation
     Dosage: UNK
  2. UNSPECIFIED INGREDIENT [Suspect]
     Active Substance: UNSPECIFIED INGREDIENT
     Indication: Thromboembolectomy
     Dosage: UNK
  3. SULODEXIDE [Suspect]
     Active Substance: SULODEXIDE
     Indication: Thrombectomy
     Dosage: UNK
     Route: 048

REACTIONS (3)
  - Reocclusion [Recovered/Resolved]
  - Peripheral artery thrombosis [Recovered/Resolved]
  - Peripheral arterial occlusive disease [Recovered/Resolved]
